FAERS Safety Report 4942284-7 (Version None)
Quarter: 2006Q1

REPORT INFORMATION
  Report Type: 
  Country: None (occurrence: None)
  Receive Date: 20060313
  Receipt Date: 20050328
  Transmission Date: 20060701
  Serious: No
  Sender: FDA-Public Use
  Company Number: 2005-00869

PATIENT
  Age: 49 Year
  Sex: Female

DRUGS (1)
  1. NICOTINE GUM [Suspect]

REACTIONS (1)
  - DRUG INEFFECTIVE [None]
